FAERS Safety Report 7376734-6 (Version None)
Quarter: 2011Q1

REPORT INFORMATION
  Report Type: 
  Country: None (occurrence: None)
  Receive Date: 20110325
  Receipt Date: 20110316
  Transmission Date: 20110831
  Serious: Yes (Hospitalization)
  Sender: FDA-Public Use
  Company Number: GB-ASTRAZENECA-2011SE08504

PATIENT
  Age: 72 Year
  Sex: Male
  Weight: 83 kg

DRUGS (26)
  1. NEXIUM [Suspect]
     Route: 048
  2. CARAFATE [Concomitant]
  3. VITAMIN B-12 [Concomitant]
     Dosage: 1.25/50000IU BIWK
  4. MORPHINE [Concomitant]
  5. PRILOSEC [Concomitant]
  6. PAZOLE [Concomitant]
  7. OXYCODONE [Concomitant]
  8. LIPITOR [Concomitant]
  9. NEXIUM [Suspect]
     Route: 048
  10. VALIUM [Concomitant]
  11. ASPIRIN [Concomitant]
  12. LOTRISONE [Concomitant]
     Dosage: TO APPLY TWICE DAILY
  13. REGLAN [Concomitant]
  14. PAXIL [Concomitant]
  15. EFFEXOR [Concomitant]
  16. MAXZIDE [Concomitant]
  17. LOVASTATIN [Concomitant]
     Indication: HYPERCHOLESTEROLAEMIA
  18. TRAZODONE HCL [Concomitant]
  19. FIORICET [Concomitant]
  20. SEROQUEL [Suspect]
     Route: 048
  21. MULTI-VITAMINS [Concomitant]
  22. DITROPAN [Concomitant]
  23. PROMETHAZINE [Concomitant]
  24. ATARAX [Concomitant]
  25. LORACET [Concomitant]
  26. MICRO-K [Concomitant]

REACTIONS (12)
  - CEREBROVASCULAR ACCIDENT [None]
  - ASTHENIA [None]
  - HAEMORRHAGIC ANAEMIA [None]
  - PEPTIC ULCER [None]
  - FALL [None]
  - DYSURIA [None]
  - HEMIPARESIS [None]
  - GASTROINTESTINAL HAEMORRHAGE [None]
  - BACK PAIN [None]
  - BALANCE DISORDER [None]
  - OEDEMA PERIPHERAL [None]
  - NEUROPATHY PERIPHERAL [None]
